FAERS Safety Report 18377913 (Version 1)
Quarter: 2020Q4

REPORT INFORMATION
  Report Type: Spontaneous
  Country: CN (occurrence: CN)
  Receive Date: 20201013
  Receipt Date: 20201013
  Transmission Date: 20210114
  Serious: Yes (Other)
  Sender: FDA-Public Use
  Company Number: CN-PFIZER INC-2020393098

PATIENT

DRUGS (1)
  1. VIZIMPRO [Suspect]
     Active Substance: DACOMITINIB
     Indication: METASTATIC NEOPLASM
     Route: 048

REACTIONS (2)
  - Cerebral haemorrhage [Unknown]
  - Neoplasm progression [Unknown]
